FAERS Safety Report 18339376 (Version 1)
Quarter: 2020Q4

REPORT INFORMATION
  Report Type: Spontaneous
  Country: CA (occurrence: CA)
  Receive Date: 20201002
  Receipt Date: 20201002
  Transmission Date: 20210113
  Serious: Yes (Hospitalization, Disabling)
  Sender: FDA-Public Use
  Company Number: CA-TEVA-2020-CA-1834129

PATIENT
  Age: 63 Year
  Sex: Female
  Weight: 77 kg

DRUGS (3)
  1. IRBESARTAN. [Concomitant]
     Active Substance: IRBESARTAN
  2. TEVA-CARBAMAZEPINE [Suspect]
     Active Substance: CARBAMAZEPINE
     Indication: EPILEPSY
     Dosage: 800 MILLIGRAM DAILY;
     Route: 002
  3. HCTZ [Concomitant]
     Active Substance: HYDROCHLOROTHIAZIDE

REACTIONS (20)
  - Acute hepatic failure [Unknown]
  - Hypotension [Unknown]
  - Faeces pale [Unknown]
  - Hepatic encephalopathy [Unknown]
  - Jaundice [Unknown]
  - Toxicity to various agents [Unknown]
  - Abdominal pain [Unknown]
  - Asthenia [Unknown]
  - Coagulopathy [Unknown]
  - Constipation [Unknown]
  - Intra-abdominal haemorrhage [Unknown]
  - Psychomotor skills impaired [Unknown]
  - Ascites [Unknown]
  - Blood bilirubin increased [Unknown]
  - Hepatic enzyme increased [Unknown]
  - Periportal oedema [Unknown]
  - Biliary dilatation [Unknown]
  - Intensive care [Unknown]
  - Confusional state [Unknown]
  - Presyncope [Unknown]
